FAERS Safety Report 6279352-6 (Version None)
Quarter: 2009Q3

REPORT INFORMATION
  Report Type: 
  Country: None (occurrence: None)
  Receive Date: 20090723
  Receipt Date: 20080905
  Transmission Date: 20100115
  Serious: Yes (Hospitalization, Other)
  Sender: FDA-Public Use
  Company Number: US-AMGEN-US298643

PATIENT
  Sex: Male
  Weight: 83 kg

DRUGS (8)
  1. EPOGEN [Suspect]
     Indication: DIALYSIS
     Route: 058
     Dates: start: 20060510
  2. COUMADIN [Concomitant]
     Route: 048
     Dates: start: 20070411
  3. HYTRIN [Concomitant]
     Route: 048
     Dates: start: 20080625
  4. LIPITOR [Concomitant]
     Route: 065
     Dates: start: 20070417
  5. NIACIN [Concomitant]
     Route: 065
     Dates: start: 20080625
  6. NORVASC [Concomitant]
     Route: 048
     Dates: start: 20080718
  7. NEPHRO-VITE [Concomitant]
     Route: 065
     Dates: start: 20070411
  8. ZEMPLAR [Concomitant]
     Route: 042

REACTIONS (3)
  - ANAEMIA [None]
  - DIARRHOEA [None]
  - INFECTION [None]
